FAERS Safety Report 9242459 (Version 4)
Quarter: 2013Q3

REPORT INFORMATION
  Report Type: Spontaneous
  Country: US (occurrence: US)
  Receive Date: 20130419
  Receipt Date: 20130703
  Transmission Date: 20140515
  Serious: Yes (Hospitalization)
  Sender: FDA-Public Use
  Company Number: US-PFIZER INC-2013120599

PATIENT
  Age: 80 Year
  Sex: Male
  Weight: 77.1 kg

DRUGS (14)
  1. SUTENT [Suspect]
     Indication: RENAL CELL CARCINOMA
     Dosage: 37.5 MG (BY TAKING THREE 12.5 MG PILLS AT A TIME), CYCLIC, FOUR WEEKS ON, TWO WEEKS OFF
     Route: 048
     Dates: start: 20130327, end: 20130418
  2. CREON [Concomitant]
     Dosage: UNK
  3. ENALAPRIL [Concomitant]
     Dosage: UNK
  4. CASODEX [Concomitant]
     Dosage: UNK
  5. GEMFIBROZIL [Concomitant]
     Dosage: UNK
  6. OXYBUTYNIN [Concomitant]
     Dosage: UNK
  7. PRAVASTATIN [Concomitant]
     Dosage: UNK
  8. REQUIP [Concomitant]
     Dosage: UNK
  9. VITAMIN D [Concomitant]
     Dosage: UNK
  10. ASPIRIN [Concomitant]
     Dosage: 325 MG DAILY
  11. PROTONIX [Concomitant]
     Dosage: UNK
  12. INSULIN [Concomitant]
     Dosage: UNK
  13. LISINOPRIL [Concomitant]
     Indication: HYPERTENSION
     Dosage: UNK
  14. METOPROLOL [Concomitant]
     Indication: HYPERTENSION
     Dosage: 100 MG, UNK

REACTIONS (9)
  - Pancreatic haemorrhage [Recovering/Resolving]
  - Second primary malignancy [Unknown]
  - Pancreatic carcinoma [Unknown]
  - Fatigue [Unknown]
  - Dizziness [Unknown]
  - Asthenia [Unknown]
  - Disease progression [Unknown]
  - Renal cell carcinoma [Unknown]
  - Weight decreased [Unknown]
